FAERS Safety Report 11152767 (Version 3)
Quarter: 2015Q3

REPORT INFORMATION
  Report Type: Report from Study
  Country: JP (occurrence: None)
  Receive Date: 20150526
  Receipt Date: 20150720
  Transmission Date: 20151125
  Serious: Yes (Death, Hospitalization, Other)
  Sender: FDA-Public Use
  Company Number: 2013FE02316

PATIENT
  Age: 70 Year
  Sex: Male
  Weight: 61 kg

DRUGS (9)
  1. CYTOTEC (MISOPROSTOL) [Concomitant]
  2. DEGARELIX [Suspect]
     Active Substance: DEGARELIX
     Indication: PROSTATE CANCER
     Route: 058
     Dates: start: 20130801, end: 20130801
  3. FENTOS (FENTANYL CITRATE) [Concomitant]
  4. ARTIST (CARVEDILOL) [Concomitant]
  5. PRAZAXA (DABIGATRAN ETEXILATE MESILATE) [Concomitant]
  6. CALONAL (PARACETAMOL) [Concomitant]
  7. URIEF (SILODOSIN) [Concomitant]
  8. DEXAMETHASONE. [Concomitant]
     Active Substance: DEXAMETHASONE
  9. LOXONIN (LOXOPROFEN SODIUM) [Concomitant]
     Active Substance: LOXOPROFEN SODIUM

REACTIONS (8)
  - Wrong technique in product usage process [None]
  - Injection site erythema [None]
  - Injection site abscess [None]
  - Injection site pain [None]
  - Prostate cancer [None]
  - Injection site induration [None]
  - Injection site swelling [None]
  - Injection site erosion [None]

NARRATIVE: CASE EVENT DATE: 20130809
